FAERS Safety Report 10363313 (Version 2)
Quarter: 2014Q3

REPORT INFORMATION
  Report Type: Spontaneous
  Country: IT (occurrence: IT)
  Receive Date: 20140805
  Receipt Date: 20140831
  Transmission Date: 20150326
  Serious: Yes (Hospitalization, Other)
  Sender: FDA-Public Use
  Company Number: IT-BRISTOL-MYERS SQUIBB COMPANY-21263751

PATIENT
  Age: 89 Year
  Sex: Male

DRUGS (5)
  1. DEURSIL [Concomitant]
     Active Substance: URSODIOL
  2. LASIX [Concomitant]
     Active Substance: FUROSEMIDE
  3. COUMADIN [Suspect]
     Active Substance: WARFARIN SODIUM
     Route: 048
  4. ZOLPIDEM TARTRATE. [Concomitant]
     Active Substance: ZOLPIDEM TARTRATE
  5. PANTOPRAZOLE [Concomitant]
     Active Substance: PANTOPRAZOLE SODIUM

REACTIONS (4)
  - Anaemia [Unknown]
  - International normalised ratio increased [Unknown]
  - Spontaneous haematoma [Recovering/Resolving]
  - Pain in extremity [Recovering/Resolving]

NARRATIVE: CASE EVENT DATE: 20140723
